FAERS Safety Report 24977286 (Version 1)
Quarter: 2025Q1

REPORT INFORMATION
  Report Type: Spontaneous
  Country: US (occurrence: US)
  Receive Date: 20250217
  Receipt Date: 20250217
  Transmission Date: 20250408
  Serious: No
  Sender: MYLAN
  Company Number: US-MYLANLABS-2025M1010228

PATIENT
  Sex: Female

DRUGS (1)
  1. SCOPOLAMINE TRANSDERMAL SYSTEM [Suspect]
     Active Substance: SCOPOLAMINE
     Indication: Prophylaxis of nausea and vomiting
     Dosage: 1 MILLIGRAM, Q3D (EVERY 3 DAYS)
     Route: 062

REACTIONS (3)
  - Product communication issue [Unknown]
  - Product adhesion issue [Unknown]
  - Off label use [Unknown]
